FAERS Safety Report 24657397 (Version 1)
Quarter: 2024Q4

REPORT INFORMATION
  Report Type: Spontaneous
  Country: EU (occurrence: EU)
  Receive Date: 20241125
  Receipt Date: 20241125
  Transmission Date: 20250114
  Serious: Yes (Other)
  Sender: BAUSCH AND LOMB
  Company Number: HR-PFIZER INC-PV202400146287

PATIENT
  Age: 57 Year
  Sex: Female

DRUGS (7)
  1. DEXAMETHASONE SODIUM PHOSPHATE [Suspect]
     Active Substance: DEXAMETHASONE SODIUM PHOSPHATE
     Indication: Product used for unknown indication
     Dosage: UNK, CYCLIC
     Route: 065
  2. CYTARABINE [Suspect]
     Active Substance: CYTARABINE
     Indication: Product used for unknown indication
     Dosage: UNK, CYCLIC
     Route: 065
  3. RITUXIMAB [Suspect]
     Active Substance: RITUXIMAB
     Indication: Product used for unknown indication
     Dosage: UNK, CYCLIC
     Route: 065
  4. VINCRISTINE [Suspect]
     Active Substance: VINCRISTINE
     Indication: Product used for unknown indication
     Dosage: UNK, CYCLIC
     Route: 065
  5. CYCLOPHOSPHAMIDE [Suspect]
     Active Substance: CYCLOPHOSPHAMIDE
     Indication: Product used for unknown indication
     Dosage: UNK, CYCLIC
     Route: 065
  6. DOXORUBICIN [Suspect]
     Active Substance: DOXORUBICIN
     Indication: Product used for unknown indication
     Dosage: UNK, CYCLIC
     Route: 065
  7. METHOTREXATE [Suspect]
     Active Substance: METHOTREXATE
     Indication: Product used for unknown indication
     Dosage: UNK UNK, CYCLIC
     Route: 065

REACTIONS (7)
  - Thrombocytopenia [Recovered/Resolved]
  - Transfusion reaction [Recovered/Resolved]
  - Thrombocytopenic purpura [Recovered/Resolved]
  - Febrile neutropenia [Recovered/Resolved]
  - Escherichia bacteraemia [Recovered/Resolved]
  - Subarachnoid haemorrhage [Unknown]
  - Parotitis [Unknown]
